FAERS Safety Report 5120362-X (Version None)
Quarter: 2006Q4

REPORT INFORMATION
  Report Type: 
  Country: None (occurrence: None)
  Receive Date: 20061002
  Receipt Date: 20060913
  Transmission Date: 20070319
  Serious: Yes (Hospitalization, Other)
  Sender: FDA-Public Use
  Company Number: HR200609006057

PATIENT
  Age: 36 Year
  Sex: Female

DRUGS (2)
  1. OLANZAPINE [Suspect]
     Indication: SCHIZOPHRENIA
  2. FLUPHENAZINE HYDROCHLORIDE (FLUPHENAZINE HYDROCHLORIDE) [Concomitant]

REACTIONS (13)
  - BLOOD SODIUM DECREASED [None]
  - DEHYDRATION [None]
  - DEPRESSED LEVEL OF CONSCIOUSNESS [None]
  - DRUG INTERACTION [None]
  - DRUG SCREEN POSITIVE [None]
  - ELECTROENCEPHALOGRAM ABNORMAL [None]
  - GRAND MAL CONVULSION [None]
  - HYPERHIDROSIS [None]
  - HYPOTENSION [None]
  - NEUROLEPTIC MALIGNANT SYNDROME [None]
  - SALIVARY HYPERSECRETION [None]
  - SINUS TACHYCARDIA [None]
  - WHITE BLOOD CELL COUNT INCREASED [None]
